FAERS Safety Report 6372089-4 (Version None)
Quarter: 2009Q3

REPORT INFORMATION
  Report Type: 
  Country: None (occurrence: None)
  Receive Date: 20090917
  Receipt Date: 20090903
  Transmission Date: 20100115
  Serious: Yes (Other)
  Sender: FDA-Public Use
  Company Number: 1000008833

PATIENT
  Age: 40 Year
  Sex: Female
  Weight: 75 kg

DRUGS (4)
  1. ESCITALOPRAM [Suspect]
     Indication: DEPRESSION
     Dosage: 5-10 MG DAILY, ORAL
     Route: 048
     Dates: start: 20081204
  2. ESCITALOPRAM [Suspect]
     Indication: DEPRESSION
     Dosage: 5-10 MG DAILY, ORAL
     Route: 048
  3. ELTROXIN (TABLETS) [Concomitant]
  4. CENTYL (TABLETS) [Concomitant]

REACTIONS (14)
  - ANXIETY [None]
  - DIZZINESS [None]
  - DRY MOUTH [None]
  - DRY THROAT [None]
  - DYSPHONIA [None]
  - FATIGUE [None]
  - NAUSEA [None]
  - PALPITATIONS [None]
  - PANIC ATTACK [None]
  - RESTLESSNESS [None]
  - SENSATION OF FOREIGN BODY [None]
  - SLEEP DISORDER [None]
  - SUICIDAL IDEATION [None]
  - TREMOR [None]
